FAERS Safety Report 5794555-2 (Version None)
Quarter: 2008Q2

REPORT INFORMATION
  Report Type: 
  Country: None (occurrence: None)
  Receive Date: 20080626
  Receipt Date: 20080623
  Transmission Date: 20081010
  Serious: Yes (Hospitalization)
  Sender: FDA-Public Use
  Company Number: 08GB001077

PATIENT
  Age: 87 Year
  Sex: Male

DRUGS (9)
  1. PAROXETINE HCL [Suspect]
     Indication: DRUG USE FOR UNKNOWN INDICATION
     Dosage: 20 MG
     Dates: start: 20080529, end: 20080602
  2. BECLOMETHASONE DIPROPIONATE [Concomitant]
  3. BENDROFLUMETHIAZIDE (BENDROFLUMETHIAZIDE) [Concomitant]
  4. DIAZEPAM [Concomitant]
  5. LANSOPRAZOLE [Concomitant]
  6. ACETAMINOPHEN [Concomitant]
  7. SALBUTAMOL (SALBUTAMOL) [Concomitant]
  8. SERETIDE (FLUTICASONE PROPIONATE, SALMETEROL XINAFOATE) [Concomitant]
  9. SIMVASTATIN [Concomitant]

REACTIONS (5)
  - ANOREXIA [None]
  - COLD SWEAT [None]
  - DIARRHOEA [None]
  - FEELING HOT [None]
  - PALPITATIONS [None]
